FAERS Safety Report 5495505-9 (Version None)
Quarter: 2007Q4

REPORT INFORMATION
  Report Type: 
  Country: None (occurrence: None)
  Receive Date: 20071023
  Receipt Date: 20071010
  Transmission Date: 20080405
  Serious: Yes (Death)
  Sender: FDA-Public Use
  Company Number: CLOF-10713

PATIENT

DRUGS (2)
  1. CLOFARABINE. MFR: GENZYME [Suspect]
     Indication: ACUTE MYELOID LEUKAEMIA
     Dosage: 40 MG/M2 IV
     Route: 042
     Dates: start: 20070927
  2. CYTARABINE [Suspect]
     Indication: ACUTE MYELOID LEUKAEMIA
     Dosage: 1900 MG IV
     Route: 042
     Dates: start: 20070927

REACTIONS (1)
  - TOXIC EPIDERMAL NECROLYSIS [None]
